FAERS Safety Report 19256315 (Version 1)
Quarter: 2021Q2

REPORT INFORMATION
  Report Type: Report from Study
  Country: US (occurrence: US)
  Receive Date: 20210513
  Receipt Date: 20210513
  Transmission Date: 20210717
  Serious: Yes (Other)
  Sender: FDA-Public Use
  Company Number: US-TEVA-2021-US-1910262

PATIENT
  Sex: Female

DRUGS (3)
  1. LACOSAMIDE. [Suspect]
     Active Substance: LACOSAMIDE
     Indication: PARTIAL SEIZURES
     Route: 065
  2. CLOBAZAM. [Suspect]
     Active Substance: CLOBAZAM
     Indication: PARTIAL SEIZURES
     Route: 065
  3. LEVETIRACETAM. [Suspect]
     Active Substance: LEVETIRACETAM
     Indication: PARTIAL SEIZURES
     Route: 065

REACTIONS (1)
  - Drug resistance [Unknown]
